FAERS Safety Report 4431467-0 (Version None)
Quarter: 2004Q3

REPORT INFORMATION
  Report Type: 
  Country: None (occurrence: None)
  Receive Date: 20040824
  Receipt Date: 20040817
  Transmission Date: 20050211
  Serious: Yes (Hospitalization)
  Sender: FDA-Public Use
  Company Number: GB-BRISTOL-MYERS SQUIBB COMPANY-12673521

PATIENT
  Age: 45 Year
  Sex: Female

DRUGS (3)
  1. CARBOPLATIN [Suspect]
     Indication: OVARIAN CANCER
     Dosage: AUC 5 OR AUC EDTA4 ON DAY 8
     Route: 042
     Dates: start: 20040628, end: 20040628
  2. GEMCITABINE HCL [Suspect]
     Indication: OVARIAN CANCER
     Dosage: DAYS 1 AND 8
     Route: 042
     Dates: start: 20040628, end: 20040628
  3. LAMOTRIGINE [Concomitant]
     Indication: EPILEPSY

REACTIONS (1)
  - EPILEPSY [None]
